FAERS Safety Report 4362650-0 (Version None)
Quarter: 2004Q2

REPORT INFORMATION
  Report Type: 
  Country: None (occurrence: None)
  Receive Date: 20040524
  Receipt Date: 20040510
  Transmission Date: 20050107
  Serious: Yes (Life-Threatening)
  Sender: FDA-Public Use
  Company Number: EMADSS2001005646

PATIENT
  Sex: Male

DRUGS (1)
  1. DAKTARIN [Suspect]
     Route: 049
     Dates: start: 20010808, end: 20010808

REACTIONS (4)
  - CYANOSIS NEONATAL [None]
  - NEONATAL APNOEIC ATTACK [None]
  - OBSTRUCTIVE AIRWAYS DISORDER [None]
  - RESPIRATORY DISORDER NEONATAL [None]
